FAERS Safety Report 23217348 (Version 1)
Quarter: 2023Q4

REPORT INFORMATION
  Report Type: Spontaneous
  Country: CH (occurrence: CH)
  Receive Date: 20231122
  Receipt Date: 20231122
  Transmission Date: 20240110
  Serious: Yes (Life-Threatening)
  Sender: FDA-Public Use
  Company Number: None

PATIENT
  Age: 56 Year
  Sex: Male
  Weight: 76 kg

DRUGS (11)
  1. ALBUMIN HUMAN [Suspect]
     Active Substance: ALBUMIN HUMAN
     Indication: Liver transplant
     Dosage: 20 GRAM
     Route: 042
     Dates: start: 20231104, end: 20231104
  2. SUFENTA [Concomitant]
     Active Substance: SUFENTANIL CITRATE
     Indication: Liver transplant
  3. SUFENTA [Concomitant]
     Active Substance: SUFENTANIL CITRATE
     Indication: Liver transplant
  4. SEVOFLURANE [Concomitant]
     Active Substance: SEVOFLURANE
     Indication: Liver transplant
  5. SEVOFLURANE [Concomitant]
     Active Substance: SEVOFLURANE
     Indication: Liver transplant
  6. ROCURONIUM BROMIDE [Concomitant]
     Active Substance: ROCURONIUM BROMIDE
     Indication: Liver transplant
  7. ROCURONIUM BROMIDE [Concomitant]
     Active Substance: ROCURONIUM BROMIDE
     Indication: Liver transplant
  8. NOREPINEPHRINE [Concomitant]
     Active Substance: NOREPINEPHRINE
     Indication: Liver transplant
  9. NOREPINEPHRINE [Concomitant]
     Active Substance: NOREPINEPHRINE
     Indication: Liver transplant
  10. ZINACEF [Concomitant]
     Active Substance: CEFUROXIME SODIUM
     Indication: Liver transplant
  11. ZINACEF [Concomitant]
     Active Substance: CEFUROXIME SODIUM
     Indication: Liver transplant

REACTIONS (4)
  - Hypersensitivity [Recovered/Resolved]
  - Cardiovascular disorder [Recovered/Resolved]
  - Oxygen saturation decreased [Recovered/Resolved]
  - Angioedema [Recovered/Resolved]

NARRATIVE: CASE EVENT DATE: 20231104
